FAERS Safety Report 8277095-0 (Version None)
Quarter: 2012Q2

REPORT INFORMATION
  Report Type: 
  Country: None (occurrence: None)
  Receive Date: 20120412
  Receipt Date: 20120328
  Transmission Date: 20120825
  Serious: Yes (Death)
  Sender: FDA-Public Use
  Company Number: BE-ROCHE-1054224

PATIENT
  Age: 42 Year
  Sex: Male

DRUGS (3)
  1. CLONAZEPAM [Suspect]
     Indication: EPILEPSY
     Route: 065
  2. LEVETIRACETAM [Suspect]
     Indication: EPILEPSY
     Route: 065
  3. LAMOTRGINE [Suspect]
     Indication: EPILEPSY
     Route: 065

REACTIONS (1)
  - DRUG RASH WITH EOSINOPHILIA AND SYSTEMIC SYMPTOMS [None]
